FAERS Safety Report 11168003 (Version 1)
Quarter: 2015Q2

REPORT INFORMATION
  Report Type: Spontaneous
  Country: US (occurrence: None)
  Receive Date: 20150515
  Receipt Date: 20150515
  Transmission Date: 20150821
  Serious: Yes (Hospitalization)
  Sender: FDA-Public Use
  Company Number: 2014010472

PATIENT
  Age: 39 Year
  Sex: Female
  Weight: 77.5 kg

DRUGS (2)
  1. CIMZIA [Suspect]
     Active Substance: CERTOLIZUMAB PEGOL
     Indication: CROHN^S DISEASE
     Route: 058
     Dates: start: 20140821
  2. IMURAN [Concomitant]
     Active Substance: AZATHIOPRINE

REACTIONS (7)
  - Rash [None]
  - Product quality issue [None]
  - Chest discomfort [None]
  - Abdominal pain [None]
  - Crohn^s disease [None]
  - Influenza like illness [None]
  - Nasopharyngitis [None]

NARRATIVE: CASE EVENT DATE: 2014
